FAERS Safety Report 12242068 (Version 2)
Quarter: 2017Q1

REPORT INFORMATION
  Report Type: Spontaneous
  Country: JP (occurrence: JP)
  Receive Date: 20160406
  Receipt Date: 20170127
  Transmission Date: 20170428
  Serious: Yes (Life-Threatening, Hospitalization, Other)
  Sender: FDA-Public Use
  Company Number: JP-009507513-1602JPN004111

PATIENT
  Age: 86 Year
  Sex: Female
  Weight: 30 kg

DRUGS (9)
  1. REBAMIDE [Concomitant]
     Indication: GASTRIC ULCER
     Dosage: 100 MG, BID
     Route: 048
  2. RHEUMATREX [Concomitant]
     Active Substance: METHOTREXATE SODIUM
     Indication: RHEUMATOID ARTHRITIS
     Dosage: 4 MG, QW
     Route: 048
  3. FOSAMAC TABLETS 35MG [Suspect]
     Active Substance: ALENDRONATE SODIUM
     Indication: OSTEOPOROSIS
     Dosage: UNK
     Route: 048
     Dates: end: 20141031
  4. MILTAX [Concomitant]
     Active Substance: VIDARABINE
     Dosage: DAILY DOSAGE UNKNOWN, BID
     Route: 062
  5. MEDROL [Concomitant]
     Active Substance: METHYLPREDNISOLONE
     Dosage: 2MG IN THE MORNING AND 1MG IN THE EVENING
     Route: 048
  6. LOXOPROFEN [Concomitant]
     Active Substance: LOXOPROFEN
     Indication: HEADACHE
     Dosage: 60 MG AS NEEDED, FORMULATION: POR
     Route: 048
  7. LOXOPROFEN [Concomitant]
     Active Substance: LOXOPROFEN
     Dosage: AS NEEDED
     Route: 048
  8. MEDROL [Concomitant]
     Active Substance: METHYLPREDNISOLONE
     Indication: RHEUMATOID ARTHRITIS
     Dosage: 2 MG IN THE MORNING, 1 MG IN THE EVENING
     Route: 048
  9. MAGMITT [Concomitant]
     Active Substance: MAGNESIUM OXIDE
     Indication: CONSTIPATION
     Dosage: 660 MG, BID
     Route: 048

REACTIONS (3)
  - Chronic sinusitis [Recovered/Resolved]
  - Osteonecrosis of jaw [Recovered/Resolved]
  - Subperiosteal abscess [Recovered/Resolved]

NARRATIVE: CASE EVENT DATE: 201409
